FAERS Safety Report 13524852 (Version 1)
Quarter: 2017Q2

REPORT INFORMATION
  Report Type: Spontaneous
  Country: US (occurrence: US)
  Receive Date: 20170508
  Receipt Date: 20170508
  Transmission Date: 20170830
  Serious: No
  Sender: FDA-Public Use
  Company Number: US-ROCHE-1123169

PATIENT
  Sex: Male

DRUGS (6)
  1. FLUOROURACIL. [Concomitant]
     Active Substance: FLUOROURACIL
  2. VINBLASTINE [Concomitant]
     Active Substance: VINBLASTINE
  3. INTERLEUKIN [Concomitant]
     Active Substance: INTERLEUKIN NOS
     Dosage: HIGHER DOSES
     Route: 065
  4. CISPLATIN. [Concomitant]
     Active Substance: CISPLATIN
  5. AVASTIN [Suspect]
     Active Substance: BEVACIZUMAB
     Indication: RENAL CANCER
     Route: 065
  6. INTERFERON NOS [Concomitant]
     Active Substance: INTERFERON
     Dosage: HIGHER DOSES
     Route: 065

REACTIONS (1)
  - Disease progression [Unknown]
